FAERS Safety Report 21553478 (Version 2)
Quarter: 2022Q4

REPORT INFORMATION
  Report Type: Report from Study
  Country: US (occurrence: US)
  Receive Date: 20221104
  Receipt Date: 20221129
  Transmission Date: 20230113
  Serious: Yes (Other)
  Sender: FDA-Public Use
  Company Number: US-ABBVIE-4187679

PATIENT
  Age: 57 Year
  Sex: Female

DRUGS (2)
  1. VENCLEXTA [Suspect]
     Active Substance: VENETOCLAX
     Indication: Chronic lymphocytic leukaemia (in remission)
     Route: 048
  2. VENCLEXTA [Suspect]
     Active Substance: VENETOCLAX
     Indication: Chronic lymphocytic leukaemia (in remission)
     Route: 048
     Dates: start: 202211

REACTIONS (8)
  - Bladder cancer [Unknown]
  - Loss of personal independence in daily activities [Unknown]
  - Blood pressure decreased [Unknown]
  - Bladder hypertrophy [Unknown]
  - Dehydration [Unknown]
  - Loss of consciousness [Unknown]
  - Diarrhoea [Unknown]
  - Emotional disorder [Unknown]

NARRATIVE: CASE EVENT DATE: 20221101
